FAERS Safety Report 5606520-6 (Version None)
Quarter: 2008Q1

REPORT INFORMATION
  Report Type: 
  Country: None (occurrence: None)
  Receive Date: 20080129
  Receipt Date: 20080123
  Transmission Date: 20080703
  Serious: Yes (Hospitalization)
  Sender: FDA-Public Use
  Company Number: B0504013A

PATIENT
  Age: 66 Year
  Sex: Male
  Weight: 70 kg

DRUGS (14)
  1. VALTREX [Suspect]
     Indication: HERPES ZOSTER
     Dosage: 1000MG PER DAY
     Route: 048
     Dates: start: 20080110, end: 20080115
  2. ARASENA-A [Concomitant]
     Route: 061
  3. ITOROL [Concomitant]
     Route: 048
  4. ALOSITOL [Concomitant]
     Route: 048
  5. CALTAN [Concomitant]
     Route: 048
  6. CARDENALIN [Concomitant]
     Route: 048
  7. CONIEL [Concomitant]
     Route: 048
  8. SIGMART [Concomitant]
     Route: 048
  9. SELOKEN [Concomitant]
     Route: 048
  10. ASPIRIN [Concomitant]
     Route: 048
  11. MUCOSTA [Concomitant]
     Route: 048
  12. FUROSEMIDE [Concomitant]
     Route: 048
  13. LIPITOR [Concomitant]
     Route: 048
  14. RENAGEL [Concomitant]
     Route: 048

REACTIONS (2)
  - MOOD ALTERED [None]
  - NERVOUS SYSTEM DISORDER [None]
